FAERS Safety Report 20535973 (Version 2)
Quarter: 2022Q1

REPORT INFORMATION
  Report Type: Spontaneous
  Country: US (occurrence: US)
  Receive Date: 20220302
  Receipt Date: 20220309
  Transmission Date: 20220423
  Serious: Yes (Other)
  Sender: FDA-Public Use
  Company Number: US-MLMSERVICE-20220217-3382191-1

PATIENT
  Age: 49 Year
  Sex: Male

DRUGS (3)
  1. OXALIPLATIN [Suspect]
     Active Substance: OXALIPLATIN
     Indication: Bladder cancer
     Dosage: SEVEN CYCLES
     Route: 065
  2. FLUOROURACIL [Concomitant]
     Active Substance: FLUOROURACIL
     Indication: Bladder cancer
     Dosage: SEVEN CYCLES
     Route: 065
  3. LEUCOVORIN [Concomitant]
     Active Substance: LEUCOVORIN
     Indication: Bladder cancer
     Dosage: SEVEN CYCLES
     Route: 065

REACTIONS (2)
  - Peripheral ischaemia [Recovering/Resolving]
  - Extremity necrosis [Recovering/Resolving]
